FAERS Safety Report 7881376-X (Version None)
Quarter: 2011Q4

REPORT INFORMATION
  Report Type: 
  Country: None (occurrence: None)
  Receive Date: 20111101
  Receipt Date: 20110525
  Transmission Date: 20120403
  Serious: No
  Sender: FDA-Public Use
  Company Number: US-AMGEN-USASP2011027239

PATIENT
  Age: 46 Year
  Sex: Female

DRUGS (2)
  1. ASPIRIN [Concomitant]
  2. ENBREL [Suspect]
     Dosage: 50 MG, QWK
     Dates: start: 20110325

REACTIONS (11)
  - SCAR [None]
  - ABDOMINAL PAIN [None]
  - WOUND [None]
  - RASH PAPULAR [None]
  - LOCALISED INFECTION [None]
  - RASH ERYTHEMATOUS [None]
  - BURNING SENSATION [None]
  - POLLAKIURIA [None]
  - PRURITUS [None]
  - RASH PUSTULAR [None]
  - INJECTION SITE HAEMATOMA [None]
